FAERS Safety Report 10614526 (Version 2)
Quarter: 2015Q1

REPORT INFORMATION
  Report Type: Spontaneous
  Country: US (occurrence: US)
  Receive Date: 20141130
  Receipt Date: 20150110
  Transmission Date: 20150720
  Serious: Yes (Other)
  Sender: FDA-Public Use
  Company Number: US-JNJFOC-20141114671

PATIENT
  Sex: Female
  Weight: 63.5 kg

DRUGS (1)
  1. CHILDRENS BENADRYL [Suspect]
     Active Substance: DIPHENHYDRAMINE HYDROCHLORIDE
     Indication: URTICARIA
     Dosage: 2 TSP
     Route: 048

REACTIONS (4)
  - Angioedema [Unknown]
  - Anaphylactic shock [Unknown]
  - Product quality issue [Unknown]
  - Reaction to drug excipients [None]
